FAERS Safety Report 4534213-5 (Version None)
Quarter: 2004Q4

REPORT INFORMATION
  Report Type: 
  Country: None (occurrence: None)
  Receive Date: 20041214
  Receipt Date: 20040831
  Transmission Date: 20050328
  Serious: No
  Sender: FDA-Public Use
  Company Number: 2004232999US

PATIENT
  Weight: 54 kg

DRUGS (3)
  1. BEXTRA [Suspect]
     Indication: INFLAMMATION
     Dosage: 10 MG QD ORAL
     Route: 048
     Dates: start: 20040825, end: 20040830
  2. ACTONEL [Concomitant]
  3. MULTIVITAMIN [Concomitant]

REACTIONS (4)
  - FATIGUE [None]
  - FEELING ABNORMAL [None]
  - HEADACHE [None]
  - HOARSENESS [None]
